FAERS Safety Report 6425626-5 (Version None)
Quarter: 2009Q4

REPORT INFORMATION
  Report Type: 
  Country: None (occurrence: None)
  Receive Date: 20091103
  Receipt Date: 20091028
  Transmission Date: 20100525
  Serious: Yes (Hospitalization, Other)
  Sender: FDA-Public Use
  Company Number: ES-ROXANE LABORATORIES, INC.-2009-RO-01108RO

PATIENT
  Age: 12 Year
  Sex: Male
  Weight: 53 kg

DRUGS (19)
  1. METHOTREXATE [Suspect]
     Indication: B PRECURSOR TYPE ACUTE LEUKAEMIA
  2. METHOTREXATE [Suspect]
  3. METHOTREXATE [Suspect]
     Route: 037
  4. MERCAPTOPURINE [Suspect]
     Indication: ADJUVANT THERAPY
     Dosage: 50 MG
     Route: 048
  5. FUROSEMIDE [Suspect]
     Indication: NEPHROPATHY TOXIC
  6. LEUCOVORIN CALCIUM [Suspect]
     Indication: NEPHROPATHY TOXIC
  7. IMATINIB MESYLATE [Suspect]
     Indication: ADJUVANT THERAPY
     Dosage: 400 MG
     Route: 048
  8. CYTOSINE ARABINOSIDE [Suspect]
     Indication: ADJUVANT THERAPY
     Route: 037
  9. HYDROCORTISONE [Suspect]
     Indication: ADJUVANT THERAPY
     Route: 037
  10. RASBURICASE [Suspect]
     Indication: PARAESTHESIA
     Dosage: 12 MG
  11. ALUMINUM HYDROXIDE GEL [Suspect]
     Indication: PARAESTHESIA
  12. FOLINIC ACID [Suspect]
     Indication: DRUG TOXICITY
  13. FOLINIC ACID [Suspect]
  14. BICARBONATE [Suspect]
     Indication: RENAL TUBULAR ACIDOSIS
  15. TEICOPLANIN [Suspect]
     Indication: ANTIBIOTIC THERAPY
  16. CEFTAZIDIME [Suspect]
     Indication: ANTIBIOTIC THERAPY
  17. HYPERHYDRATION [Concomitant]
     Indication: DRUG TOXICITY
  18. HYPERHYDRATION [Concomitant]
  19. CARBOXYPEPTIDASE-G2 [Concomitant]
     Indication: DRUG TOXICITY

REACTIONS (6)
  - DRUG INEFFECTIVE [None]
  - DRUG TOXICITY [None]
  - HEPATOTOXICITY [None]
  - NEPHROPATHY TOXIC [None]
  - PARAESTHESIA [None]
  - PYREXIA [None]
